FAERS Safety Report 6245135-6 (Version None)
Quarter: 2009Q2

REPORT INFORMATION
  Report Type: 
  Country: None (occurrence: None)
  Receive Date: 20090625
  Receipt Date: 20090624
  Transmission Date: 20091009
  Serious: Yes (Death)
  Sender: FDA-Public Use
  Company Number: PH-B.I. PHARMACEUTICALS,INC./RIDGEFIELD-2009-SG-00304SG

PATIENT
  Age: 76 Year
  Sex: Male

DRUGS (6)
  1. MICARDIS [Suspect]
     Indication: HYPERTENSION
     Dates: start: 20090601
  2. PLAVIX [Concomitant]
  3. IBERET WITH FOLIC ACID [Concomitant]
     Indication: RENAL FAILURE
  4. INSULIN [Concomitant]
     Indication: DIABETES MELLITUS
  5. NITRATE [Concomitant]
     Indication: HYPERTENSION
  6. CALCIUM CARBONATE [Concomitant]
     Indication: RENAL FAILURE

REACTIONS (2)
  - ACUTE CORONARY SYNDROME [None]
  - TREMOR [None]
